FAERS Safety Report 9452372 (Version 1)
Quarter: 2013Q3

REPORT INFORMATION
  Report Type: Spontaneous
  Country: US (occurrence: US)
  Receive Date: 20130812
  Receipt Date: 20130812
  Transmission Date: 20140515
  Serious: No
  Sender: FDA-Public Use
  Company Number: US-009507513-1308USA002914

PATIENT
  Age: 54 Year
  Sex: Female

DRUGS (1)
  1. TEMODAR [Suspect]
     Indication: OLIGODENDROGLIOMA
     Dosage: UNK

REACTIONS (1)
  - Drug ineffective [Unknown]
